FAERS Safety Report 9690605 (Version 2)
Quarter: 2013Q4

REPORT INFORMATION
  Report Type: Spontaneous
  Country: US (occurrence: US)
  Receive Date: 20131115
  Receipt Date: 20131115
  Transmission Date: 20140711
  Serious: Yes (Hospitalization, Other)
  Sender: FDA-Public Use
  Company Number: US-BAXTER-2013BAX043985

PATIENT
  Sex: Male

DRUGS (1)
  1. EXTRANEAL [Suspect]
     Indication: PERITONEAL DIALYSIS
     Route: 033

REACTIONS (5)
  - Azotaemia [Recovering/Resolving]
  - Encephalopathy [Recovering/Resolving]
  - Localised infection [Recovering/Resolving]
  - Skin wound [Unknown]
  - Dehydration [Recovering/Resolving]
